FAERS Safety Report 4272581-2 (Version None)
Quarter: 2004Q1

REPORT INFORMATION
  Report Type: 
  Country: None (occurrence: None)
  Receive Date: 20040114
  Receipt Date: 20040114
  Transmission Date: 20041129
  Serious: Yes (Hospitalization)
  Sender: FDA-Public Use
  Company Number: None

PATIENT
  Sex: Male
  Weight: 99.4738 kg

DRUGS (2)
  1. COUMADIN [Suspect]
     Indication: ATRIAL FIBRILLATION
     Dosage: 1X5D 1/ 2X2 ONCE DAILY ORAL
     Route: 048
     Dates: start: 20030211, end: 20030404
  2. FLUCONAZOLE [Concomitant]

REACTIONS (4)
  - BALANCE DISORDER [None]
  - ECCHYMOSIS [None]
  - FALL [None]
  - INTERNATIONAL NORMALISED RATIO INCREASED [None]
